FAERS Safety Report 9781750 (Version 1)
Quarter: 2013Q4

REPORT INFORMATION
  Report Type: Spontaneous
  Country: US (occurrence: US)
  Receive Date: 20131225
  Receipt Date: 20131225
  Transmission Date: 20140711
  Serious: No
  Sender: FDA-Public Use
  Company Number: US-B.I. PHARMACEUTICALS,INC./RIDGEFIELD-2013-BI-41597BP

PATIENT
  Age: 75 Year
  Sex: Female

DRUGS (8)
  1. SPIRIVA [Suspect]
     Indication: CHRONIC OBSTRUCTIVE PULMONARY DISEASE
     Dosage: 18 MCG
     Route: 055
  2. COMBIVENT [Suspect]
     Indication: CHRONIC OBSTRUCTIVE PULMONARY DISEASE
     Dosage: STRENGTH: 20 MCG / 100 MCG; DAILY DOSE: 40 MCG / 200 MCG
     Route: 030
     Dates: start: 2013
  3. COMBIVENT [Suspect]
     Indication: ASTHMA
  4. ADVAIR [Concomitant]
     Indication: CHRONIC OBSTRUCTIVE PULMONARY DISEASE
     Route: 045
  5. ADVAIR [Concomitant]
     Indication: ASTHMA
  6. SYNTHROID [Concomitant]
     Indication: HYPOTHYROIDISM
     Dosage: 112 MCG
     Route: 048
  7. CARDIZEM [Concomitant]
     Indication: HYPERTENSION
     Dosage: 180 MG
     Route: 048
  8. HYZZAR [Concomitant]
     Indication: HYPERTENSION
     Dosage: STRENGTH: 100 MG / 25 MG; DAILY DOSE: 100 MG / 25 MG
     Route: 048

REACTIONS (2)
  - Arrhythmia [Not Recovered/Not Resolved]
  - Right atrial pressure increased [Recovered/Resolved]
